FAERS Safety Report 20130039 (Version 2)
Quarter: 2021Q4

REPORT INFORMATION
  Report Type: Report from Study
  Country: AT (occurrence: AT)
  Receive Date: 20211130
  Receipt Date: 20211209
  Transmission Date: 20220303
  Serious: Yes (Hospitalization, Other)
  Sender: FDA-Public Use
  Company Number: AT-ASTELLAS-2021US045612

PATIENT
  Age: 83 Year
  Sex: Male
  Weight: 100 kg

DRUGS (2)
  1. ENFORTUMAB VEDOTIN [Suspect]
     Active Substance: ENFORTUMAB VEDOTIN
     Indication: Transitional cell carcinoma
     Dosage: 1.25 MG/KG, CYCLIC (FIRST CYCLE, WEEKLY, 2 DOSES GIVEN)
     Route: 042
     Dates: start: 20211109, end: 20211124
  2. PHENPROCOUMON [Concomitant]
     Active Substance: PHENPROCOUMON
     Indication: Product used for unknown indication
     Dosage: 3 MG, UNKNOWN FREQ. (MONDAY AND FRIDAY 1 TABLET, ON OTHER DAYS 1/2 TABLET)
     Route: 048
     Dates: end: 202111

REACTIONS (2)
  - Leukopenia [Recovering/Resolving]
  - Stevens-Johnson syndrome [Recovering/Resolving]

NARRATIVE: CASE EVENT DATE: 20211122
